FAERS Safety Report 13246233 (Version 2)
Quarter: 2017Q1

REPORT INFORMATION
  Report Type: Spontaneous
  Country: US (occurrence: US)
  Receive Date: 20170217
  Receipt Date: 20170331
  Transmission Date: 20170428
  Serious: No
  Sender: FDA-Public Use
  Company Number: US-ASTRAZENECA-2017SE17827

PATIENT
  Age: 973 Month
  Sex: Female
  Weight: 77.1 kg

DRUGS (4)
  1. TUDORZA PRESSAIR [Suspect]
     Active Substance: ACLIDINIUM BROMIDE
     Indication: CHRONIC OBSTRUCTIVE PULMONARY DISEASE
     Dosage: 400 MCG, ONE PUFF TWICE A DAY
     Route: 055
     Dates: start: 2015
  2. VITAMINS NOS [Concomitant]
     Active Substance: VITAMINS
     Dosage: UNKNOWN
     Route: 048
  3. MELOXICAM. [Concomitant]
     Active Substance: MELOXICAM
     Indication: ARTHROPATHY
     Dosage: 7.5MG ONCE OR TWICE A DAY
     Route: 048
  4. FLUTICASONE. [Concomitant]
     Active Substance: FLUTICASONE
     Dosage: 2 PUFFS IN THE MORNING, DAILY

REACTIONS (2)
  - Dyspnoea exertional [Recovered/Resolved]
  - Device malfunction [Unknown]

NARRATIVE: CASE EVENT DATE: 201702
